FAERS Safety Report 7601516 (Version 5)
Quarter: 2014Q2

REPORT INFORMATION
  Report Type: Spontaneous
  Country: JP (occurrence: None)
  Receive Date: 20100909
  Receipt Date: 20140429
  Transmission Date: 20141212
  Serious: Yes (Hospitalization, Other)
  Sender: FDA-Public Use
  Company Number: 2009JP000641

PATIENT
  Age: 26 Year
  Sex: Female

DRUGS (49)
  1. PROGRAF (TACROLIMUS) CAPSULES [Suspect]
     Indication: LUPUS NEPHRITIS
     Dosage: 3 MG, UNKONW, FREG., ORAL
     Route: 048
     Dates: start: 20070528, end: 20100604
  2. PREDNISOLONE (PREDNISOLONE) PER ORAL NOS [Suspect]
     Indication: LUPUS NEPHRITIS
     Route: 048
     Dates: start: 20100628, end: 20100712
  3. CELLCEPT [Concomitant]
  4. GASTER D (FAMOTIDINE) ORODISPERSIBLE CR TABLET [Concomitant]
  5. ACECOL (TEMOCAPRIL HYDROCHLORIDE) [Concomitant]
  6. WARFARIN SODIUM [Concomitant]
  7. PRAVASTATIN [Concomitant]
  8. PROCYLIN [Concomitant]
  9. ITRIZOLE [Concomitant]
  10. DEPAS [Concomitant]
  11. HALCION [Concomitant]
  12. HUSCODE [Concomitant]
  13. FLOMOX [Concomitant]
  14. HUSTAZOL [Concomitant]
  15. LOXONIN [Concomitant]
  16. MUCODYNE (CARBOCISTEINE) [Concomitant]
  17. PATANOL [Concomitant]
  18. ALLEGRA [Concomitant]
  19. TAMIFLU [Concomitant]
  20. BUSCOPAN [Concomitant]
  21. MUCOSTA [Concomitant]
  22. LODOPINE [Concomitant]
  23. HIRNAMIN [Concomitant]
  24. BONALON [Concomitant]
  25. ZYPREXA [Concomitant]
  26. LORAZEPAM [Concomitant]
  27. JZOLOFT [Concomitant]
  28. FLUMETHOLON (FLUOROMETHOLONE) EYE DROP [Concomitant]
  29. TAKEPRON [Concomitant]
  30. LIPITOR [Concomitant]
  31. RASILEZ (ALISKIREN FUMARATE) (ALISKIREN FUMARATE) [Concomitant]
  32. ARASENA A (VIDARABINE) [Concomitant]
  33. VALTREX (VALACICLOVIR HYDROCHLORIDE) [Concomitant]
  34. BAKTAR [Concomitant]
  35. GENTACIN (GENTAMICIN SULFATE) [Concomitant]
  36. LYRICA (PREGABALIN) [Concomitant]
  37. VICCLOX [Concomitant]
  38. SULBACILLIN (AMPICILLIN SODIUM, SULBACTAM SODIUM) [Concomitant]
  39. MICARDIS (TELMISARTAN) [Concomitant]
  40. IMURAN [Concomitant]
  41. BUFFERIN [Concomitant]
  42. WARFARIN [Concomitant]
  43. FERROMIA [Concomitant]
  44. PATANOL [Concomitant]
  45. ALLEGRA [Concomitant]
  46. FLOMOX [Concomitant]
  47. MAGLAX (MAGNESIUM OXIDE) [Concomitant]
  48. MEVALOTIN (PRAVASTATIN SODIUM) [Concomitant]
  49. WYPAX (LORAZEPAM) [Concomitant]

REACTIONS (14)
  - Influenza [None]
  - Pulmonary hypertension [None]
  - Gingivitis [None]
  - Gastroenteritis [None]
  - Mania [None]
  - Conjunctivitis allergic [None]
  - Iron deficiency anaemia [None]
  - Rhinitis allergic [None]
  - Bronchitis [None]
  - Nasopharyngitis [None]
  - Immunosuppressant drug level increased [None]
  - Herpes zoster [None]
  - Insomnia [None]
  - Influenza [None]
